FAERS Safety Report 15197843 (Version 1)
Quarter: 2018Q3

REPORT INFORMATION
  Report Type: Spontaneous
  Country: US (occurrence: US)
  Receive Date: 20180725
  Receipt Date: 20180725
  Transmission Date: 20181010
  Serious: No
  Sender: FDA-Public Use
  Company Number: US-ABBVIE-17P-163-2170798-00

PATIENT
  Sex: Female

DRUGS (2)
  1. SYNTHROID [Suspect]
     Active Substance: LEVOTHYROXINE SODIUM
     Indication: THYROID DISORDER
     Route: 065
  2. LEVOXYL [Suspect]
     Active Substance: LEVOTHYROXINE SODIUM
     Indication: THYROID DISORDER
     Dosage: 1 X 50 MCG AND SPITTING ONE 50 MCG TO GET 25 MCG HALF, TO EQUAL A 75 MCG DOSE
     Route: 065

REACTIONS (3)
  - Hypertension [Unknown]
  - Adverse drug reaction [Unknown]
  - Feeling abnormal [Unknown]
